FAERS Safety Report 18922313 (Version 1)
Quarter: 2021Q1

REPORT INFORMATION
  Report Type: Spontaneous
  Country: US (occurrence: US)
  Receive Date: 20210220
  Receipt Date: 20210220
  Transmission Date: 20210420
  Serious: No
  Sender: FDA-Public Use
  Company Number: None

PATIENT
  Age: 75 Year
  Sex: Female

DRUGS (1)
  1. ADCIRCA [Suspect]
     Active Substance: TADALAFIL
     Route: 048
     Dates: start: 20180817

REACTIONS (4)
  - Blood pressure increased [None]
  - Vision blurred [None]
  - Therapy interrupted [None]
  - Dizziness [None]

NARRATIVE: CASE EVENT DATE: 20210220
